FAERS Safety Report 9325123 (Version 2)
Quarter: 2013Q2

REPORT INFORMATION
  Report Type: Spontaneous
  Country: DK (occurrence: DK)
  Receive Date: 20130603
  Receipt Date: 20130613
  Transmission Date: 20140414
  Serious: Yes (Hospitalization)
  Sender: FDA-Public Use
  Company Number: DK-B.I. PHARMACEUTICALS,INC./RIDGEFIELD-2013-SW-00293DB

PATIENT
  Age: 61 Year
  Sex: Female

DRUGS (3)
  1. PERSANTIN [Suspect]
     Indication: THROMBOSIS PROPHYLAXIS
     Dosage: 400 MG
     Route: 048
     Dates: start: 200501
  2. HJERTEMAGNYL [Concomitant]
     Indication: ANTICOAGULANT THERAPY
     Route: 048
     Dates: start: 200501
  3. THYCAPZOL [Concomitant]
     Indication: HYPERTHYROIDISM
     Dates: end: 2012

REACTIONS (10)
  - Cerebrovascular accident [Recovered/Resolved]
  - Loss of consciousness [Unknown]
  - Angina pectoris [Unknown]
  - Hypotension [Unknown]
  - Heart rate increased [Unknown]
  - International normalised ratio increased [Unknown]
  - Dizziness [Unknown]
  - Contusion [Unknown]
  - Nausea [Unknown]
  - Feeling hot [Unknown]
